FAERS Safety Report 16151632 (Version 1)
Quarter: 2019Q2

REPORT INFORMATION
  Report Type: Spontaneous
  Country: NL (occurrence: BE)
  Receive Date: 20190403
  Receipt Date: 20190403
  Transmission Date: 20190711
  Serious: Yes (Other)
  Sender: FDA-Public Use
  Company Number: BE-FRESENIUS KABI-FK201903258

PATIENT
  Age: 55 Year
  Sex: Female

DRUGS (3)
  1. PACLITAXEL (MANUFACTURER UNKNOWN) [Suspect]
     Active Substance: PACLITAXEL
     Indication: TRIPLE NEGATIVE BREAST CANCER
     Route: 065
     Dates: start: 20181122, end: 20190207
  2. NEBIVOLOL. [Concomitant]
     Active Substance: NEBIVOLOL
     Indication: PRODUCT USED FOR UNKNOWN INDICATION
     Dosage: 2.5 MG/DAY
     Route: 065
  3. MAGNESIUM HYDROXIDE/SILICON DIOXIDE, COLLOIDAL/DIMETICONE/ALUMINIUM HYDROXIDE-MAGNESIUM CARBONATE GE [Concomitant]
     Indication: PRODUCT USED FOR UNKNOWN INDICATION
     Dosage: STRENGTH: 20
     Route: 065

REACTIONS (6)
  - Gastritis [Unknown]
  - Alopecia [Unknown]
  - Pain in extremity [Unknown]
  - Respiratory distress [Unknown]
  - Rhinitis [Unknown]
  - Onycholysis [Unknown]
